FAERS Safety Report 15635782 (Version 1)
Quarter: 2018Q4

REPORT INFORMATION
  Report Type: Spontaneous
  Country: PT (occurrence: PT)
  Receive Date: 20181120
  Receipt Date: 20181120
  Transmission Date: 20190205
  Serious: Yes (Other)
  Sender: FDA-Public Use
  Company Number: PT-EDENBRIDGE PHARMACEUTICALS, LLC-PT-2018EDE000378

PATIENT
  Age: 70 Year
  Sex: Male

DRUGS (3)
  1. AZATHIOPRINE. [Suspect]
     Active Substance: AZATHIOPRINE
     Indication: AUTOIMMUNE HAEMOLYTIC ANAEMIA
     Dosage: 50 MG, QD
  2. PREDNISOLONE SODIUM PHOSPHATE. [Suspect]
     Active Substance: PREDNISOLONE SODIUM PHOSPHATE
     Indication: AUTOIMMUNE HAEMOLYTIC ANAEMIA
     Dosage: 60 MG, QD
  3. PREDNISOLONE SODIUM PHOSPHATE. [Suspect]
     Active Substance: PREDNISOLONE SODIUM PHOSPHATE
     Dosage: UNK (GRADUAL WEANING)

REACTIONS (1)
  - Cutaneous nocardiosis [Recovering/Resolving]
